FAERS Safety Report 9518694 (Version 1)
Quarter: 2013Q1

REPORT INFORMATION
  Report Type: Spontaneous
  Country: US (occurrence: None)
  Receive Date: 20130305
  Receipt Date: 20130305
  Transmission Date: 20140127
  Serious: Yes (Other)
  Sender: FDA-Public Use
  Company Number: 163-21880-12073102

PATIENT
  Age: 74 Year
  Sex: Male
  Weight: 104.33 kg

DRUGS (3)
  1. REVLIMID [Suspect]
     Indication: PLASMA CELL MYELOMA
     Dosage: 10 MG, 1 IN 1 D, PO
     Route: 048
     Dates: start: 201007, end: 2010
  2. DEXAMETHASONE [Suspect]
     Indication: PLASMA CELL MYELOMA
     Dosage: 2.8571 MG, 1 IN 1 WK, UNK
  3. AVAPROL (IRBESARTAN) (UNKNOWN) [Concomitant]

REACTIONS (8)
  - Osteopenia [None]
  - Pruritus [None]
  - Feeling hot [None]
  - Neuropathy peripheral [None]
  - White blood cell count decreased [None]
  - Dysphonia [None]
  - Paraesthesia [None]
  - Herpes zoster [None]
